FAERS Safety Report 24940214 (Version 1)
Quarter: 2025Q1

REPORT INFORMATION
  Report Type: Spontaneous
  Country: SG (occurrence: SG)
  Receive Date: 20250207
  Receipt Date: 20250207
  Transmission Date: 20250408
  Serious: Yes (Death, Other)
  Sender: ASTELLAS
  Company Number: SG-GILEAD-2025-0701674

PATIENT
  Age: 19 Day
  Sex: Male
  Weight: 0.96 kg

DRUGS (12)
  1. AMBISOME [Suspect]
     Active Substance: AMPHOTERICIN B
     Indication: Candida infection
     Route: 042
  2. AMBISOME [Suspect]
     Active Substance: AMPHOTERICIN B
     Indication: Acinetobacter infection
  3. AMBISOME [Suspect]
     Active Substance: AMPHOTERICIN B
     Indication: Liver abscess
  4. AMBISOME [Suspect]
     Active Substance: AMPHOTERICIN B
     Indication: Brain abscess
  5. FLUCYTOSINE [Suspect]
     Active Substance: FLUCYTOSINE
     Indication: Candida infection
     Route: 042
  6. FLUCYTOSINE [Suspect]
     Active Substance: FLUCYTOSINE
     Indication: Acinetobacter infection
  7. FLUCYTOSINE [Suspect]
     Active Substance: FLUCYTOSINE
     Indication: Liver abscess
  8. FLUCYTOSINE [Suspect]
     Active Substance: FLUCYTOSINE
     Indication: Brain abscess
  9. SULTAMICILLIN [Suspect]
     Active Substance: SULTAMICILLIN
     Indication: Candida infection
     Route: 042
  10. SULTAMICILLIN [Suspect]
     Active Substance: SULTAMICILLIN
     Indication: Acinetobacter infection
  11. SULTAMICILLIN [Suspect]
     Active Substance: SULTAMICILLIN
     Indication: Liver abscess
  12. SULTAMICILLIN [Suspect]
     Active Substance: SULTAMICILLIN
     Indication: Brain abscess

REACTIONS (3)
  - Multiple organ dysfunction syndrome [Fatal]
  - Drug ineffective [Fatal]
  - Off label use [Fatal]

NARRATIVE: CASE EVENT DATE: 20000101
